FAERS Safety Report 24013964 (Version 1)
Quarter: 2024Q2

REPORT INFORMATION
  Report Type: Spontaneous
  Country: AU (occurrence: AU)
  Receive Date: 20240626
  Receipt Date: 20240626
  Transmission Date: 20240716
  Serious: Yes (Hospitalization, Other)
  Sender: FDA-Public Use
  Company Number: AU-TGA-0000787903

PATIENT

DRUGS (15)
  1. LENALIDOMIDE [Suspect]
     Active Substance: LENALIDOMIDE
     Indication: Plasma cell myeloma
     Dosage: 5 MILLIGRAM, UNK
     Route: 065
     Dates: start: 20230213, end: 20240502
  2. LENALIDOMIDE [Suspect]
     Active Substance: LENALIDOMIDE
     Dosage: 5 MILLIGRAM, UNK
     Route: 065
     Dates: start: 20230524, end: 20230731
  3. APIXABAN [Suspect]
     Active Substance: APIXABAN
     Indication: Product used for unknown indication
     Dosage: 2.5 MILLIGRAM, QD
     Route: 065
     Dates: start: 20230428, end: 20230802
  4. APIXABAN [Suspect]
     Active Substance: APIXABAN
     Dosage: 5 MILLIGRAM, BID
     Route: 065
  5. APIXABAN [Suspect]
     Active Substance: APIXABAN
     Dosage: 2.5 MILLIGRAM, QD
     Route: 065
     Dates: start: 20230814
  6. BORTEZOMIB [Suspect]
     Active Substance: BORTEZOMIB
     Indication: Plasma cell myeloma
     Dosage: 1.7 MILLIGRAM, UNK
     Route: 065
     Dates: start: 20230524, end: 20230731
  7. BORTEZOMIB [Suspect]
     Active Substance: BORTEZOMIB
     Dosage: 1.7 MILLIGRAM
     Route: 065
     Dates: start: 20240213
  8. DEXAMETHASONE [Suspect]
     Active Substance: DEXAMETHASONE
     Indication: Plasma cell myeloma
     Dosage: 12 MILLIGRAM, UNK
     Route: 065
     Dates: start: 20230213, end: 20240502
  9. DEXAMETHASONE [Suspect]
     Active Substance: DEXAMETHASONE
     Dosage: 12 MILLIGRAM, UNK
     Route: 065
     Dates: start: 20230524, end: 20230731
  10. AMLODIPINE [Concomitant]
     Active Substance: AMLODIPINE BESYLATE
     Indication: Product used for unknown indication
     Dosage: 10 MILLIGRAM, QD
     Route: 065
  11. ATORVASTATIN [Concomitant]
     Active Substance: ATORVASTATIN
     Indication: Product used for unknown indication
     Dosage: 40 MILLIGRAM, QD
     Route: 065
  12. IRBESARTAN [Concomitant]
     Active Substance: IRBESARTAN
     Indication: Product used for unknown indication
     Dosage: UNK, 300 MG 1 DAY
     Route: 065
  13. GLICLAZIDE [Concomitant]
     Active Substance: GLICLAZIDE
     Indication: Product used for unknown indication
     Dosage: 30 MILLIGRAM 2 DAYS
     Route: 065
  14. LINAGLIPTIN [Concomitant]
     Active Substance: LINAGLIPTIN
     Indication: Product used for unknown indication
     Dosage: 5 MILLIGRAM, QD
     Route: 065
  15. METOPROLOL [Concomitant]
     Active Substance: METOPROLOL
     Indication: Product used for unknown indication
     Dosage: 12.5 MILLIGRAM 2 DAYS
     Route: 065

REACTIONS (3)
  - Haemoglobin abnormal [Recovered/Resolved]
  - Acute kidney injury [Recovered/Resolved]
  - Gastrointestinal haemorrhage [Recovered/Resolved]

NARRATIVE: CASE EVENT DATE: 20230731
